FAERS Safety Report 21395714 (Version 1)
Quarter: 2022Q3

REPORT INFORMATION
  Report Type: Spontaneous
  Country: BR (occurrence: None)
  Receive Date: 20220930
  Receipt Date: 20220930
  Transmission Date: 20221027
  Serious: Yes (Other)
  Sender: FDA-Public Use
  Company Number: BR-MICRO LABS LIMITED-ML2022-04833

PATIENT
  Sex: Male

DRUGS (11)
  1. LEVETIRACETAM [Suspect]
     Active Substance: LEVETIRACETAM
     Indication: Early infantile epileptic encephalopathy with burst-suppression
  2. CLOBAZAM [Suspect]
     Active Substance: CLOBAZAM
     Indication: Early infantile epileptic encephalopathy with burst-suppression
  3. PHENOBARBITAL [Suspect]
     Active Substance: PHENOBARBITAL
     Indication: Early infantile epileptic encephalopathy with burst-suppression
  4. PYRIDOXINE [Suspect]
     Active Substance: PYRIDOXINE
     Indication: Early infantile epileptic encephalopathy with burst-suppression
     Dosage: 100/DAY
  5. PYRIDOXINE [Suspect]
     Active Substance: PYRIDOXINE
  6. PYRIDOXAL PHOSPHATE [Suspect]
     Active Substance: PYRIDOXAL PHOSPHATE
     Indication: Early infantile epileptic encephalopathy with burst-suppression
  7. PYRIDOXAL PHOSPHATE [Suspect]
     Active Substance: PYRIDOXAL PHOSPHATE
  8. VIGABATRIN [Concomitant]
     Active Substance: VIGABATRIN
     Indication: Epilepsy
     Dosage: INCREASED UNTIL 180 MG/KG/DAY
  9. TOPIRAMATE [Concomitant]
     Active Substance: TOPIRAMATE
     Indication: Epilepsy
  10. LAMOTRIGINE [Concomitant]
     Active Substance: LAMOTRIGINE
     Indication: Epilepsy
  11. CANNABIDIOL [Concomitant]
     Active Substance: CANNABIDIOL

REACTIONS (1)
  - Drug ineffective [Unknown]
